FAERS Safety Report 23794541 (Version 1)
Quarter: 2024Q2

REPORT INFORMATION
  Report Type: Spontaneous
  Country: US (occurrence: None)
  Receive Date: 20240426
  Receipt Date: 20240426
  Transmission Date: 20240716
  Serious: No
  Sender: FDA-Public Use
  Company Number: None

PATIENT
  Sex: Female

DRUGS (1)
  1. TEMOZOLOMIDE [Suspect]
     Active Substance: TEMOZOLOMIDE
     Indication: Soft tissue sarcoma
     Dosage: OTHER FREQUENCY : ONCE DAILY FOR 5 DAYS PO?
     Route: 048
     Dates: start: 202311

REACTIONS (3)
  - Enteritis [None]
  - Colitis [None]
  - Full blood count decreased [None]
